FAERS Safety Report 22540194 (Version 1)
Quarter: 2023Q2

REPORT INFORMATION
  Report Type: Spontaneous
  Country: US (occurrence: US)
  Receive Date: 20230609
  Receipt Date: 20230609
  Transmission Date: 20230722
  Serious: No
  Sender: FDA-Public Use
  Company Number: US-SA-SAC20230608000245

PATIENT
  Age: 45 Year
  Sex: Female
  Weight: 71.6 kg

DRUGS (5)
  1. DUPIXENT [Suspect]
     Active Substance: DUPILUMAB
     Indication: Dermatitis atopic
     Dosage: 300 MG, QOW
     Route: 058
     Dates: start: 20230424
  2. HYDROCORTISONE [Concomitant]
     Active Substance: HYDROCORTISONE
  3. VITAMIN D NOS [Concomitant]
     Active Substance: VITAMIN D NOS
  4. VITAMINS [Concomitant]
     Active Substance: VITAMINS
  5. FISH OIL [Concomitant]
     Active Substance: FISH OIL

REACTIONS (1)
  - Injection site urticaria [Recovered/Resolved]

NARRATIVE: CASE EVENT DATE: 20230101
